FAERS Safety Report 6229447-8 (Version None)
Quarter: 2009Q2

REPORT INFORMATION
  Report Type: 
  Country: None (occurrence: None)
  Receive Date: 20090615
  Receipt Date: 20090601
  Transmission Date: 20091009
  Serious: Yes (Hospitalization)
  Sender: FDA-Public Use
  Company Number: A0731268A

PATIENT
  Age: 68 Year
  Sex: Male
  Weight: 113.6 kg

DRUGS (13)
  1. AVANDIA [Suspect]
     Dosage: 8MG PER DAY
     Route: 048
     Dates: start: 20030501, end: 20060401
  2. METFORMIN HYDROCHLORIDE [Concomitant]
     Dates: start: 19980101, end: 20080101
  3. BYETTA [Concomitant]
     Dates: start: 20000101
  4. NOVOLOG [Concomitant]
     Dates: start: 20020101
  5. METOPROLOL SUCCINATE [Concomitant]
     Dates: start: 20040101
  6. LIPITOR [Concomitant]
     Dates: start: 20000101
  7. SERTRALINE [Concomitant]
     Dates: start: 20010101
  8. AMLODIPINE [Concomitant]
  9. BENAZAPRIL [Concomitant]
  10. LEVOTHYROXINE [Concomitant]
  11. FLOMAX [Concomitant]
  12. AVODART [Concomitant]
  13. VITAMINS [Concomitant]

REACTIONS (3)
  - CEREBROVASCULAR ACCIDENT [None]
  - INJURY [None]
  - PAIN [None]
